FAERS Safety Report 25705495 (Version 1)
Quarter: 2025Q3

REPORT INFORMATION
  Report Type: Other
  Country: US (occurrence: US)
  Receive Date: 20250820
  Receipt Date: 20250820
  Transmission Date: 20251021
  Serious: Yes (Life-Threatening, Hospitalization, Other)
  Sender: Hibrow Healthcare
  Company Number: US-Hibrow Healthcare Private Ltd-2182867

PATIENT
  Age: 68 Year
  Sex: Female

DRUGS (3)
  1. OXYBUTYNIN CHLORIDE [Suspect]
     Active Substance: OXYBUTYNIN CHLORIDE
     Indication: Product used for unknown indication
  2. CYCLOBENZAPRINE [Suspect]
     Active Substance: CYCLOBENZAPRINE
  3. OMEPRAZOLE [Suspect]
     Active Substance: OMEPRAZOLE

REACTIONS (4)
  - Impaired gastric emptying [Unknown]
  - Vomiting projectile [Unknown]
  - Acute respiratory failure [Unknown]
  - Pneumonitis aspiration [Unknown]
